FAERS Safety Report 20433993 (Version 13)
Quarter: 2022Q3

REPORT INFORMATION
  Report Type: Report from Study
  Country: CN (occurrence: None)
  Receive Date: 20220205
  Receipt Date: 20220701
  Transmission Date: 20221026
  Serious: Yes (Hospitalization)
  Sender: FDA-Public Use
  Company Number: CN-ROCHE-3002434

PATIENT
  Age: 45 Year
  Sex: Female
  Weight: 65 kg

DRUGS (94)
  1. GLOFITAMAB [Suspect]
     Active Substance: GLOFITAMAB
     Indication: Diffuse large B-cell lymphoma refractory
     Dosage: DOSE LAST STUDY DRUG ADMIN PRIOR AE/SAE 30 MG?ON 21/DEC/2021 MOST RECENT DOSE OF GLOFITAMAB PRIOR TO
     Route: 042
     Dates: start: 20210831
  2. TOCILIZUMAB [Suspect]
     Active Substance: TOCILIZUMAB
     Indication: Diffuse large B-cell lymphoma refractory
     Dosage: ON 14/JAN/2022, MOST RECENT DOSE (480 MG) OF STUDY DRUG PRIOR TO AE/SAE
     Route: 042
  3. OBINUTUZUMAB [Suspect]
     Active Substance: OBINUTUZUMAB
     Indication: Diffuse large B-cell lymphoma refractory
     Dosage: DOSE LAST STUDY DRUG ADMIN PRIOR AE/SAE 1000 MG?ON 24/AUG/2021 MOST RECENT DOSE OF OBINUTUZUMAB PRIO
     Route: 042
     Dates: start: 20210824
  4. GEMCITABINE [Suspect]
     Active Substance: GEMCITABINE
     Indication: Diffuse large B-cell lymphoma refractory
     Dosage: DOSE LAST STUDY DRUG ADMIN PRIOR AE/SAE 1747 MG?ON 21/DEC/2021 MOST RECENT DOSE OF GEMCITABINE PRIOR
     Route: 042
     Dates: start: 20210825
  5. OXALIPLATIN [Suspect]
     Active Substance: OXALIPLATIN
     Indication: Diffuse large B-cell lymphoma refractory
     Dosage: ON 21/DEC/2021 MOST RECENT DOSE OF OXALIPLATIN PRIOR TO AE/SAE?DOSE LAST STUDY DRUG ADMIN PRIOR SAE
     Route: 042
     Dates: start: 20210825
  6. DEXAMETHASONE [Concomitant]
     Active Substance: DEXAMETHASONE
     Indication: Hypersensitivity
     Route: 042
     Dates: start: 20211221, end: 20211221
  7. DEXAMETHASONE [Concomitant]
     Active Substance: DEXAMETHASONE
     Route: 042
     Dates: start: 20220114, end: 20220114
  8. PROMETHAZINE HYDROCHLORIDE [Concomitant]
     Active Substance: PROMETHAZINE HYDROCHLORIDE
     Indication: Hypersensitivity
     Route: 030
     Dates: start: 20211221, end: 20211221
  9. PROMETHAZINE HYDROCHLORIDE [Concomitant]
     Active Substance: PROMETHAZINE HYDROCHLORIDE
     Route: 030
     Dates: start: 20220121, end: 20220121
  10. HEROMBOPAG OLAMINE [Concomitant]
     Indication: Thrombocytopenia
     Route: 048
     Dates: start: 20211213, end: 20211217
  11. HEROMBOPAG OLAMINE [Concomitant]
     Indication: Platelet count decreased
     Route: 048
     Dates: start: 20220121, end: 20220130
  12. PEGYLATED RECOMBINANT HUMAN GRANULOCYTE COLONY STIMULATING FACTOR [Concomitant]
     Route: 058
     Dates: start: 20211223, end: 20211223
  13. FOSAPREPITANT DIMEGLUMINE [Concomitant]
     Active Substance: FOSAPREPITANT DIMEGLUMINE
     Indication: Vomiting
     Route: 042
     Dates: start: 20211221, end: 20211221
  14. TORSEMIDE [Concomitant]
     Active Substance: TORSEMIDE
     Indication: Polyuria
     Route: 042
     Dates: start: 20211221, end: 20211221
  15. ESOMEPRAZOLE SODIUM [Concomitant]
     Active Substance: ESOMEPRAZOLE SODIUM
     Route: 042
     Dates: start: 20211221, end: 20211222
  16. ESOMEPRAZOLE SODIUM [Concomitant]
     Active Substance: ESOMEPRAZOLE SODIUM
     Route: 042
     Dates: start: 20220119, end: 20220122
  17. ESOMEPRAZOLE SODIUM [Concomitant]
     Active Substance: ESOMEPRAZOLE SODIUM
     Route: 042
     Dates: start: 20220122, end: 20220126
  18. ESOMEPRAZOLE SODIUM [Concomitant]
     Active Substance: ESOMEPRAZOLE SODIUM
     Route: 048
     Dates: start: 20220126
  19. MANNATIDE [Concomitant]
     Route: 042
     Dates: start: 20211221, end: 20211222
  20. CALCIUM ASPARTATE [Concomitant]
     Active Substance: CALCIUM ASPARTATE
     Route: 042
     Dates: start: 20211221, end: 20211222
  21. AMIFOSTINE [Concomitant]
     Active Substance: AMIFOSTINE
     Route: 042
     Dates: start: 20211221, end: 20211221
  22. AZASETRON HYDROCHLORIDE AND SODIUM CHLORIDE [Concomitant]
     Indication: Vomiting
     Route: 042
     Dates: start: 20211221, end: 20211221
  23. BUCLADESINE CALCIUM [Concomitant]
     Active Substance: BUCLADESINE CALCIUM
     Route: 042
     Dates: start: 20211221, end: 20211222
  24. MAGNESIUM ISOGLYCYRRHIZINATE [Concomitant]
     Active Substance: MAGNESIUM ISOGLYCYRRHIZINATE
     Route: 042
     Dates: start: 20211221, end: 20211222
  25. MAGNESIUM ISOGLYCYRRHIZINATE [Concomitant]
     Active Substance: MAGNESIUM ISOGLYCYRRHIZINATE
     Route: 042
     Dates: start: 20220112, end: 20220116
  26. SODIUM DEOXYRIBONUCLEOTIDE [Concomitant]
     Route: 042
     Dates: start: 20211221, end: 20211222
  27. CALCIUM CHLORIDE\POTASSIUM CHLORIDE\SODIUM CHLORIDE [Concomitant]
     Active Substance: CALCIUM CHLORIDE\POTASSIUM CHLORIDE\SODIUM CHLORIDE
     Route: 042
     Dates: start: 20211221, end: 20211222
  28. CALCIUM CHLORIDE\POTASSIUM CHLORIDE\SODIUM CHLORIDE [Concomitant]
     Active Substance: CALCIUM CHLORIDE\POTASSIUM CHLORIDE\SODIUM CHLORIDE
     Route: 042
     Dates: start: 20220112, end: 20220113
  29. ACETAMINOPHEN [Concomitant]
     Active Substance: ACETAMINOPHEN
     Route: 048
     Dates: start: 20211221, end: 20211221
  30. ACETAMINOPHEN [Concomitant]
     Active Substance: ACETAMINOPHEN
     Route: 048
     Dates: start: 20211228, end: 20211229
  31. DEXTROMETHORPHAN HYDROBROMIDE [Concomitant]
     Active Substance: DEXTROMETHORPHAN HYDROBROMIDE
     Route: 048
     Dates: start: 20211221, end: 20211221
  32. DEXTROMETHORPHAN HYDROBROMIDE [Concomitant]
     Active Substance: DEXTROMETHORPHAN HYDROBROMIDE
     Route: 048
     Dates: start: 20211228, end: 20211229
  33. CHLORPHENIRAMINE MALEATE [Concomitant]
     Active Substance: CHLORPHENIRAMINE MALEATE
     Route: 048
     Dates: start: 20211221, end: 20211221
  34. CHLORPHENIRAMINE MALEATE [Concomitant]
     Active Substance: CHLORPHENIRAMINE MALEATE
     Route: 048
     Dates: start: 20211228, end: 20211229
  35. PARACETAMOL, PSEUDOEPHEDRINE HYDROCHLORIDE AND DEXTROMETHORPHAN HYDROB [Concomitant]
     Indication: Pyrexia
     Route: 048
     Dates: start: 20220110, end: 20220111
  36. PARACETAMOL, PSEUDOEPHEDRINE HYDROCHLORIDE AND DEXTROMETHORPHAN HYDROB [Concomitant]
     Route: 048
     Dates: start: 20211221, end: 20211221
  37. PARACETAMOL, PSEUDOEPHEDRINE HYDROCHLORIDE AND DEXTROMETHORPHAN HYDROB [Concomitant]
     Route: 048
     Dates: start: 20211228, end: 20211229
  38. POTASSIUM CHLORIDE [Concomitant]
     Active Substance: POTASSIUM CHLORIDE
     Route: 042
     Dates: start: 20220119, end: 20220126
  39. POTASSIUM CHLORIDE [Concomitant]
     Active Substance: POTASSIUM CHLORIDE
     Route: 048
     Dates: start: 20220112, end: 20220112
  40. POTASSIUM CHLORIDE [Concomitant]
     Active Substance: POTASSIUM CHLORIDE
     Route: 048
     Dates: start: 20220113, end: 20220113
  41. POTASSIUM CHLORIDE [Concomitant]
     Active Substance: POTASSIUM CHLORIDE
     Route: 048
     Dates: start: 20220115, end: 20220115
  42. POTASSIUM CHLORIDE [Concomitant]
     Active Substance: POTASSIUM CHLORIDE
     Route: 048
     Dates: start: 20220116, end: 20220116
  43. POTASSIUM CHLORIDE [Concomitant]
     Active Substance: POTASSIUM CHLORIDE
     Route: 048
     Dates: start: 20220117, end: 20220117
  44. POTASSIUM CHLORIDE [Concomitant]
     Active Substance: POTASSIUM CHLORIDE
     Route: 048
     Dates: start: 20220112, end: 20220119
  45. POTASSIUM CHLORIDE [Concomitant]
     Active Substance: POTASSIUM CHLORIDE
     Route: 042
     Dates: start: 20220113, end: 20220118
  46. POTASSIUM CHLORIDE [Concomitant]
     Active Substance: POTASSIUM CHLORIDE
     Route: 042
     Dates: start: 20220116, end: 20220118
  47. POTASSIUM CHLORIDE [Concomitant]
     Active Substance: POTASSIUM CHLORIDE
     Route: 048
     Dates: start: 20220119, end: 20220119
  48. POTASSIUM CHLORIDE [Concomitant]
     Active Substance: POTASSIUM CHLORIDE
     Route: 048
     Dates: start: 20220125, end: 20220125
  49. POTASSIUM CHLORIDE [Concomitant]
     Active Substance: POTASSIUM CHLORIDE
     Route: 048
     Dates: start: 20220126, end: 20220130
  50. ALANYL GLUTAMINE [Concomitant]
     Active Substance: ALANYL GLUTAMINE
     Indication: Parenteral nutrition
     Route: 042
     Dates: start: 20220119, end: 20220126
  51. ALANYL GLUTAMINE [Concomitant]
     Active Substance: ALANYL GLUTAMINE
     Route: 042
     Dates: start: 20220112, end: 20220115
  52. GANCICLOVIR [Concomitant]
     Active Substance: GANCICLOVIR
     Indication: Infection
     Route: 042
     Dates: start: 20220120, end: 20220126
  53. GANCICLOVIR [Concomitant]
     Active Substance: GANCICLOVIR
     Route: 048
     Dates: start: 20220114, end: 20220119
  54. VANCOCIN [Concomitant]
     Active Substance: VANCOMYCIN HYDROCHLORIDE
     Route: 042
     Dates: start: 20220116, end: 20220116
  55. VANCOCIN [Concomitant]
     Active Substance: VANCOMYCIN HYDROCHLORIDE
     Route: 042
     Dates: start: 20220116, end: 20220118
  56. IBUPROFEN [Concomitant]
     Active Substance: IBUPROFEN
     Route: 048
     Dates: start: 20220112, end: 20220112
  57. RACEANISODAMINE HYDROCHLORIDE [Concomitant]
     Indication: Pain
     Route: 042
     Dates: start: 20220113, end: 20220113
  58. RACEANISODAMINE HYDROCHLORIDE [Concomitant]
     Route: 030
     Dates: start: 20220116, end: 20220116
  59. RACEANISODAMINE HYDROCHLORIDE [Concomitant]
     Route: 030
     Dates: start: 20220118, end: 20220118
  60. DEXTROSE [Concomitant]
     Active Substance: DEXTROSE
     Route: 042
     Dates: start: 20220115, end: 20220115
  61. DEXTROSE [Concomitant]
     Active Substance: DEXTROSE
     Route: 042
     Dates: start: 20220119, end: 20220126
  62. RECOMBINANT HUMAN GRANULOCYTE STIMULATING FACTOR (UNK INGREDIENTS) [Concomitant]
     Route: 058
     Dates: start: 20220115, end: 20220115
  63. RECOMBINANT HUMAN GRANULOCYTE STIMULATING FACTOR (UNK INGREDIENTS) [Concomitant]
     Route: 058
     Dates: start: 20220116, end: 20220116
  64. RECOMBINANT HUMAN GRANULOCYTE STIMULATING FACTOR (UNK INGREDIENTS) [Concomitant]
     Route: 058
     Dates: start: 20220118, end: 20220118
  65. PHLOROGLUCINOL [Concomitant]
     Active Substance: PHLOROGLUCINOL
     Indication: Pain
     Route: 042
     Dates: start: 20220115, end: 20220115
  66. TRAMADOL HYDROCHLORIDE [Concomitant]
     Active Substance: TRAMADOL HYDROCHLORIDE
     Indication: Pain
     Route: 030
     Dates: start: 20220116, end: 20220116
  67. TRAMADOL HYDROCHLORIDE [Concomitant]
     Active Substance: TRAMADOL HYDROCHLORIDE
     Route: 030
     Dates: start: 20220120, end: 20220120
  68. METOCLOPRAMIDE DIHYDROCHLORIDE [Concomitant]
     Route: 030
     Dates: start: 20220116, end: 20220116
  69. HUMAN IMMUNOGLOBULIN G [Concomitant]
     Active Substance: HUMAN IMMUNOGLOBULIN G
     Route: 042
     Dates: start: 20220116, end: 20220116
  70. SANDOSTATIN [Concomitant]
     Active Substance: OCTREOTIDE ACETATE
     Indication: Abdominal pain
     Route: 058
     Dates: start: 20220118, end: 20220118
  71. SANDOSTATIN [Concomitant]
     Active Substance: OCTREOTIDE ACETATE
     Indication: Diarrhoea
  72. ALANYL GLUTAMINE [Concomitant]
     Active Substance: ALANYL GLUTAMINE
     Route: 042
     Dates: start: 20220118, end: 20220118
  73. THROMBOPOIETIN [Concomitant]
     Active Substance: THROMBOPOIETIN
     Route: 058
     Dates: start: 20220118, end: 20220118
  74. THROMBOPOIETIN [Concomitant]
     Active Substance: THROMBOPOIETIN
     Route: 058
     Dates: start: 20220121, end: 20220126
  75. FOSCARNET SODIUM [Concomitant]
     Active Substance: FOSCARNET SODIUM
     Route: 042
     Dates: start: 20220118, end: 20220118
  76. OXYCODONE AND ACETAMINOPHEN [Concomitant]
     Active Substance: ACETAMINOPHEN\OXYCODONE HYDROCHLORIDE
     Indication: Pain
     Route: 048
     Dates: start: 20220119, end: 20220119
  77. RABEPRAZOLE [Concomitant]
     Active Substance: RABEPRAZOLE
     Route: 042
     Dates: start: 20220112, end: 20220118
  78. CEFTAZIDIME;TAZOBACTAM SODIUM [Concomitant]
     Route: 042
     Dates: start: 20220112, end: 20220116
  79. ETIMICIN SULFATE [Concomitant]
     Active Substance: ETIMICIN SULFATE
     Route: 042
     Dates: start: 20220112, end: 20220116
  80. SODIUM ACETATE RINGER [Concomitant]
     Route: 042
     Dates: start: 20220113, end: 20220115
  81. VORICONAZOLE [Concomitant]
     Active Substance: VORICONAZOLE
     Route: 042
     Dates: start: 20220114, end: 20220118
  82. DEZOCINE [Concomitant]
     Active Substance: DEZOCINE
     Indication: Pain
     Route: 042
     Dates: start: 20220116, end: 20220118
  83. DEZOCINE [Concomitant]
     Active Substance: DEZOCINE
     Route: 042
     Dates: start: 20220119, end: 20220119
  84. DEZOCINE [Concomitant]
     Active Substance: DEZOCINE
     Route: 042
     Dates: start: 20220120, end: 20220120
  85. DEZOCINE [Concomitant]
     Active Substance: DEZOCINE
     Route: 042
     Dates: start: 20220120, end: 20220120
  86. DEZOCINE [Concomitant]
     Active Substance: DEZOCINE
     Route: 042
     Dates: start: 20220121, end: 20220121
  87. DEXTROSE\SODIUM CHLORIDE [Concomitant]
     Active Substance: DEXTROSE\SODIUM CHLORIDE
     Route: 042
     Dates: start: 20220119, end: 20220126
  88. MULTI-OIL FAT EMULSION (UNK INGREDIENTS) [Concomitant]
     Indication: Parenteral nutrition
     Route: 042
     Dates: start: 20220119, end: 20220126
  89. PREDNISOLONE ACETATE [Concomitant]
     Active Substance: PREDNISOLONE ACETATE
     Indication: Pyrexia
     Route: 048
     Dates: start: 20220216
  90. PREDNISOLONE ACETATE [Concomitant]
     Active Substance: PREDNISOLONE ACETATE
     Route: 048
     Dates: start: 20220113, end: 20220113
  91. D-CAL [Concomitant]
     Active Substance: CALCIUM CARBONATE
     Route: 048
     Dates: start: 20220121
  92. HYDROCORTISONE SODIUM SUCCINATE [Concomitant]
     Active Substance: HYDROCORTISONE SODIUM SUCCINATE
     Route: 042
     Dates: start: 20220121, end: 20220125
  93. ESTAZOLAM [Concomitant]
     Active Substance: ESTAZOLAM
     Route: 048
     Dates: start: 20220124, end: 20220126
  94. GLUTATHIONE REDUCED [Concomitant]
     Route: 048
     Dates: start: 20220126, end: 20220130

REACTIONS (4)
  - Pyrexia [Recovered/Resolved]
  - Colitis [Not Recovered/Not Resolved]
  - Enteritis [Not Recovered/Not Resolved]
  - Platelet count decreased [Not Recovered/Not Resolved]

NARRATIVE: CASE EVENT DATE: 20211224
